FAERS Safety Report 13731928 (Version 1)
Quarter: 2017Q3

REPORT INFORMATION
  Report Type: Spontaneous
  Country: US (occurrence: US)
  Receive Date: 20170707
  Receipt Date: 20170707
  Transmission Date: 20171127
  Serious: No
  Sender: FDA-Public Use
  Company Number: US-JNJFOC-20160814758

PATIENT
  Age: 24 Year
  Sex: Female
  Weight: 74.39 kg

DRUGS (3)
  1. INVEGA SUSTENNA [Suspect]
     Active Substance: PALIPERIDONE PALMITATE
     Indication: SCHIZOAFFECTIVE DISORDER
     Route: 030
  2. PRAZOSIN. [Concomitant]
     Active Substance: PRAZOSIN
     Route: 065
  3. NEURONTIN [Concomitant]
     Active Substance: GABAPENTIN
     Route: 065

REACTIONS (1)
  - Injection site mass [Unknown]
